FAERS Safety Report 9203902 (Version 1)
Quarter: 2013Q2

REPORT INFORMATION
  Report Type: Spontaneous
  Country: BR (occurrence: BR)
  Receive Date: 20130402
  Receipt Date: 20130402
  Transmission Date: 20140414
  Serious: Yes (Other)
  Sender: FDA-Public Use
  Company Number: BR-BAYER-2013-037517

PATIENT
  Age: 29 Year
  Sex: Female
  Weight: 55.96 kg

DRUGS (1)
  1. YASMIN [Suspect]
     Indication: CONTRACEPTION
     Dosage: 1 DF, QD
     Route: 048
     Dates: start: 2012

REACTIONS (3)
  - Dyspnoea at rest [Not Recovered/Not Resolved]
  - Eye swelling [Not Recovered/Not Resolved]
  - Chest pain [Not Recovered/Not Resolved]
